FAERS Safety Report 10209884 (Version 1)
Quarter: 2014Q2

REPORT INFORMATION
  Report Type: Spontaneous
  Country: EE (occurrence: EE)
  Receive Date: 20140602
  Receipt Date: 20140602
  Transmission Date: 20141212
  Serious: Yes (Other)
  Sender: FDA-Public Use
  Company Number: EE-TEVA-484995ISR

PATIENT
  Age: 74 Year
  Sex: Female
  Weight: 87 kg

DRUGS (2)
  1. G-CSF (TEVAGRASTIM/RATIOGRASTIM) [Suspect]
     Indication: NEUTROPENIA
     Dosage: 300 MICROGRAM DAILY;
     Route: 058
     Dates: start: 20130604, end: 20130612
  2. DACOGEN [Concomitant]
     Indication: REFRACTORY ANAEMIA WITH AN EXCESS OF BLASTS
     Dosage: 39 MILLIGRAM DAILY;
     Route: 042
     Dates: start: 20130527, end: 20130531

REACTIONS (4)
  - Urinary retention [Recovered/Resolved]
  - Eyelid oedema [Recovered/Resolved]
  - Petechiae [Recovered/Resolved]
  - Bone pain [Recovered/Resolved]
